FAERS Safety Report 15794991 (Version 1)
Quarter: 2019Q1

REPORT INFORMATION
  Report Type: Spontaneous
  Country: US (occurrence: US)
  Receive Date: 20190107
  Receipt Date: 20190107
  Transmission Date: 20190417
  Serious: Yes (Hospitalization)
  Sender: FDA-Public Use
  Company Number: None

PATIENT
  Age: 68 Year
  Sex: Female
  Weight: 102.6 kg

DRUGS (13)
  1. NOVOLIN 70/30 [Concomitant]
     Active Substance: INSULIN HUMAN
  2. OMEPRAZOLE. [Concomitant]
     Active Substance: OMEPRAZOLE
  3. ASPIRIN. [Concomitant]
     Active Substance: ASPIRIN
  4. IBRANCE [Suspect]
     Active Substance: PALBOCICLIB
     Indication: BREAST CANCER FEMALE
     Route: 048
     Dates: start: 20181123
  5. METFORMIN [Concomitant]
     Active Substance: METFORMIN HYDROCHLORIDE
  6. ALPRAZOLAM ER [Concomitant]
     Active Substance: ALPRAZOLAM
  7. LEVOTHYROXINE. [Concomitant]
     Active Substance: LEVOTHYROXINE
  8. SIMVASTATIN. [Concomitant]
     Active Substance: SIMVASTATIN
  9. XANAX [Concomitant]
     Active Substance: ALPRAZOLAM
  10. FUROSEMIDE. [Concomitant]
     Active Substance: FUROSEMIDE
  11. ANASTROZOLE. [Concomitant]
     Active Substance: ANASTROZOLE
  12. GLIPIZIDE. [Concomitant]
     Active Substance: GLIPIZIDE
  13. AMLODIPINE [Concomitant]
     Active Substance: AMLODIPINE BESYLATE

REACTIONS (1)
  - Gastrointestinal haemorrhage [None]
